FAERS Safety Report 15183823 (Version 1)
Quarter: 2018Q3

REPORT INFORMATION
  Report Type: Spontaneous
  Country: US (occurrence: US)
  Receive Date: 20180625
  Receipt Date: 20180625
  Transmission Date: 20181010
  Serious: No
  Sender: FDA-Public Use
  Company Number: None

PATIENT
  Age: 36 Year
  Sex: Female
  Weight: 85.5 kg

DRUGS (12)
  1. METHOTREXATE. [Concomitant]
     Active Substance: METHOTREXATE
  2. FOLIC ACID. [Concomitant]
     Active Substance: FOLIC ACID
  3. BUPROPION XL [Concomitant]
     Active Substance: BUPROPION
  4. VITAMIN B12 [Concomitant]
     Active Substance: CYANOCOBALAMIN
  5. ESCITALOPRAM [Concomitant]
     Active Substance: ESCITALOPRAM OXALATE
  6. VITAMIN D3 [Concomitant]
     Active Substance: CHOLECALCIFEROL
  7. ATORVASTATIN [Concomitant]
     Active Substance: ATORVASTATIN
  8. METOPROLOL SUCCINATE. [Concomitant]
     Active Substance: METOPROLOL SUCCINATE
  9. INTROVALE (GENERAL SEASONALE) [Concomitant]
  10. OMEPRAZOLE. [Concomitant]
     Active Substance: OMEPRAZOLE
  11. HUMIRA [Suspect]
     Active Substance: ADALIMUMAB
     Indication: RHEUMATOID ARTHRITIS
     Dosage: ?          QUANTITY:1 INJECTION(S);?
     Route: 058
     Dates: start: 20180506, end: 20180617
  12. AMLODIPINE [Concomitant]
     Active Substance: AMLODIPINE BESYLATE

REACTIONS (1)
  - Hypersensitivity [None]

NARRATIVE: CASE EVENT DATE: 20180617
